FAERS Safety Report 8710367 (Version 3)
Quarter: 2014Q2

REPORT INFORMATION
  Report Type: Spontaneous
  Country: US (occurrence: US)
  Receive Date: 20120807
  Receipt Date: 20140404
  Transmission Date: 20141212
  Serious: Yes (Hospitalization)
  Sender: FDA-Public Use
  Company Number: US-BAYER-2012-079156

PATIENT
  Age: 45 Year
  Sex: Female

DRUGS (3)
  1. MIRENA [Suspect]
     Indication: CONTRACEPTION
     Dosage: 20 MCG/24HR, CONT
     Route: 015
     Dates: start: 20071010, end: 20071018
  2. MIRENA [Suspect]
     Indication: CONTRACEPTION
     Dosage: 20 MCG/24HR, CONT
     Route: 015
     Dates: start: 20071018, end: 20110812
  3. CLONAZEPAM [Concomitant]
     Dosage: UNK
     Route: 048

REACTIONS (5)
  - Uterine perforation [None]
  - Pain [None]
  - Device expulsion [None]
  - Injury [None]
  - Emotional disorder [None]
